FAERS Safety Report 7816230-2 (Version None)
Quarter: 2011Q4

REPORT INFORMATION
  Report Type: 
  Country: None (occurrence: None)
  Receive Date: 20111016
  Receipt Date: 20110928
  Transmission Date: 20120403
  Serious: Yes (Hospitalization)
  Sender: FDA-Public Use
  Company Number: PHHO2010US07373

PATIENT
  Age: 26 Year
  Sex: Male
  Weight: 109.6 kg

DRUGS (9)
  1. DIOVAN [Suspect]
     Indication: HYPERTENSION
     Dosage: 80 MG, QD
     Route: 048
     Dates: start: 20100201, end: 20100424
  2. ASCORBIC ACID [Concomitant]
  3. MULTI-VITAMINS [Concomitant]
  4. AMLODIPINE [Suspect]
     Indication: HYPERTENSION
     Dosage: 10 MG, QD
     Route: 048
     Dates: start: 20100101, end: 20100424
  5. PRILOSEC [Concomitant]
     Indication: GASTROOESOPHAGEAL REFLUX DISEASE
  6. PRAVASTATIN [Concomitant]
  7. MYCOPHENOLATE MOFETIL (CELLCEPT) [Suspect]
     Indication: IMMUNOSUPPRESSION
     Dosage: 500 MG, BID
     Route: 048
     Dates: start: 20081209
  8. FENOFIBRATE [Concomitant]
  9. TRETINOIN [Concomitant]
     Indication: ACNE

REACTIONS (11)
  - ANAEMIA [None]
  - HYPOKALAEMIA [None]
  - SYNCOPE [None]
  - ANAL FISSURE [None]
  - HYPOTENSION [None]
  - OCCULT BLOOD POSITIVE [None]
  - BLOOD CREATININE INCREASED [None]
  - STAPHYLOCOCCAL PHARYNGITIS [None]
  - DEHYDRATION [None]
  - HAEMATOCHEZIA [None]
  - DIZZINESS [None]
